FAERS Safety Report 10056048 (Version 1)
Quarter: 2014Q2

REPORT INFORMATION
  Report Type: Report from Study
  Country: NL (occurrence: NL)
  Receive Date: 20140403
  Receipt Date: 20140403
  Transmission Date: 20141212
  Serious: Yes (Death, Hospitalization)
  Sender: FDA-Public Use
  Company Number: NL-JNJFOC-20140314980

PATIENT
  Age: 84 Year
  Sex: Male

DRUGS (12)
  1. ABIRATERONE ACETATE [Suspect]
     Indication: PROSTATE CANCER
     Dosage: 250 MG 1DD3
     Route: 048
     Dates: start: 20130511, end: 20130808
  2. PCM [Concomitant]
     Dosage: 500 MG ZN
     Route: 065
  3. MAGNESIUM HYDROXIDE [Concomitant]
     Dosage: 3DD1
     Route: 065
  4. DEXAMETHASONE [Concomitant]
     Dosage: 2DD1
     Route: 065
  5. MOVICOLON [Concomitant]
     Dosage: 1DD1
     Route: 065
  6. TILDIEM [Concomitant]
     Dosage: 1DD1
     Route: 065
  7. CALCICHEW [Concomitant]
     Dosage: 440IE, 1DD1
     Route: 065
  8. SYMBICORT [Concomitant]
     Dosage: 400/12, 2DD1
     Route: 065
  9. SPIRIVA [Concomitant]
     Dosage: 1DD1
     Route: 065
  10. ZOLADEX [Concomitant]
     Indication: PROSTATE CANCER
     Dosage: 1X3MND
     Route: 065
     Dates: start: 2011
  11. OXYCODON [Concomitant]
     Dosage: 2DD1
     Route: 065
  12. OXYNORM [Concomitant]
     Dosage: 10 MG ZN TOT 2DD1
     Route: 065

REACTIONS (7)
  - Prostate cancer [Fatal]
  - Prostate cancer metastatic [Unknown]
  - Fall [Unknown]
  - Back pain [Unknown]
  - Paraparesis [Unknown]
  - Lumbar spinal stenosis [Unknown]
  - Incorrect dose administered [Unknown]
